FAERS Safety Report 6263922-5 (Version None)
Quarter: 2009Q3

REPORT INFORMATION
  Report Type: 
  Country: None (occurrence: None)
  Receive Date: 20090710
  Receipt Date: 20090701
  Transmission Date: 20100115
  Serious: Yes (Hospitalization)
  Sender: FDA-Public Use
  Company Number: TR-BAYER-200924804GPV

PATIENT
  Age: 71 Year
  Sex: Female

DRUGS (1)
  1. ASPIRIN [Suspect]
     Indication: ARRHYTHMIA

REACTIONS (8)
  - AREFLEXIA [None]
  - BACK PAIN [None]
  - ENCOPRESIS [None]
  - EXTRADURAL HAEMATOMA [None]
  - HYPOAESTHESIA [None]
  - MUSCULAR WEAKNESS [None]
  - PARAPARESIS [None]
  - URINARY INCONTINENCE [None]
